FAERS Safety Report 8434690-3 (Version None)
Quarter: 2012Q2

REPORT INFORMATION
  Report Type: 
  Country: None (occurrence: None)
  Receive Date: 20120323
  Receipt Date: 20110722
  Transmission Date: 20120825
  Serious: Yes (Hospitalization)
  Sender: FDA-Public Use
  Company Number: 163-21880-11070249

PATIENT
  Age: 71 Year
  Sex: Male
  Weight: 111.1313 kg

DRUGS (6)
  1. PLAVIX [Concomitant]
  2. INSULIN [Concomitant]
  3. REVLIMID [Suspect]
     Indication: PLASMACYTOMA
     Dosage: 15 MG, DAILY FOR 21 DAYS, PO
     Route: 048
     Dates: start: 20110331, end: 20110101
  4. SIMVASTATIN [Concomitant]
  5. ASPIRIN [Concomitant]
  6. LISINOPRIL [Concomitant]

REACTIONS (2)
  - PULMONARY EMBOLISM [None]
  - DEEP VEIN THROMBOSIS [None]
